FAERS Safety Report 9219154 (Version 1)
Quarter: 2013Q1

REPORT INFORMATION
  Report Type: Spontaneous
  Country: US (occurrence: None)
  Receive Date: 20120830
  Receipt Date: 20120830
  Transmission Date: 20140127
  Serious: Yes (Hospitalization, Other)
  Sender: FDA-Public Use
  Company Number: PHEH2012US007956

PATIENT
  Age: 60 Year
  Sex: Male

DRUGS (9)
  1. SANDOSTATIN LAR DEPOT (OCTREOTIDE WITH POLY(D L-LACTIDE-CO-GLYCOLIDE)) SUSPENSION [Suspect]
     Indication: NEUROENDOCRINE CARCINOMA
     Route: 030
     Dates: start: 201108, end: 201202
  2. INSULIN (INSULINE) [Concomitant]
  3. LANTUS (INSULIN GLARGINE) [Concomitant]
  4. NOVOLOG (INSULIN ASPART) [Concomitant]
  5. SUCRALFATE (SUCRALFATE) [Concomitant]
  6. ONDASETRON (ONDANSETRON) [Concomitant]
  7. FENTANYL (FENTANYL) [Concomitant]
  8. MIRALAX [Concomitant]
  9. NEXIUM (ESOMEPRAZOLE MAGNESIUM) [Concomitant]

REACTIONS (7)
  - Diabetes mellitus [None]
  - Neoplasm malignant [None]
  - Haemorrhage [None]
  - Metastases to bone [None]
  - Metastases to stomach [None]
  - Back pain [None]
  - Metastatic pain [None]
